FAERS Safety Report 20532578 (Version 1)
Quarter: 2022Q1

REPORT INFORMATION
  Report Type: Report from Study
  Country: EG (occurrence: EG)
  Receive Date: 20220301
  Receipt Date: 20220301
  Transmission Date: 20220423
  Serious: Yes (Other)
  Sender: FDA-Public Use
  Company Number: EG-NOVARTISPH-NVSC2022EG042149

PATIENT
  Age: 43 Year
  Sex: Female

DRUGS (8)
  1. FEMARA [Suspect]
     Active Substance: LETROZOLE
     Indication: Breast cancer metastatic
     Dosage: 2.5 MG, QD
     Route: 048
     Dates: start: 201705, end: 202107
  2. FASLODEX [Concomitant]
     Active Substance: FULVESTRANT
     Indication: Product used for unknown indication
     Dosage: UNK (6 CYCLES IN 6 MONTH)
     Route: 065
     Dates: start: 202107
  3. IBRANCE [Concomitant]
     Active Substance: PALBOCICLIB
     Indication: Product used for unknown indication
     Dosage: UNK(6 CYCLES IN 6 MONTH)
     Route: 065
     Dates: start: 202107
  4. CISPLATIN [Concomitant]
     Active Substance: CISPLATIN
     Indication: Chemotherapy
     Dosage: UNK, Q3W(TOOK 3 CYCLES)
     Route: 065
  5. XGEVA [Concomitant]
     Active Substance: DENOSUMAB
     Indication: Product used for unknown indication
     Dosage: UNK (ONCE MONTHY FOR 3 YEARS THEN ONCE EVERY 3 MONTH)
     Route: 065
     Dates: start: 2017
  6. XGEVA [Concomitant]
     Active Substance: DENOSUMAB
     Dosage: UNK (PATIENT IS TAKING ONCE MONTHLY)
     Route: 065
     Dates: start: 202111
  7. NEUPOGEN [Concomitant]
     Active Substance: FILGRASTIM
     Indication: Product used for unknown indication
     Dosage: UNK (STARTED 4 INJECTIONS CONSECUTIVELY THEN 3 TO 4 INJECTIONS ONCE MONTHLY AND NOW TAKEN ONLY WHEN
     Route: 065
  8. ARICEPT [Concomitant]
     Active Substance: DONEPEZIL HYDROCHLORIDE
     Indication: Product used for unknown indication
     Dosage: UNK
     Route: 065
     Dates: start: 20220223

REACTIONS (4)
  - Haemoglobin decreased [Recovering/Resolving]
  - Metastases to bone marrow [Recovering/Resolving]
  - Breast cancer metastatic [Recovering/Resolving]
  - Malignant neoplasm progression [Recovering/Resolving]

NARRATIVE: CASE EVENT DATE: 20210701
